FAERS Safety Report 21273731 (Version 2)
Quarter: 2022Q3

REPORT INFORMATION
  Report Type: Spontaneous
  Country: GB (occurrence: GB)
  Receive Date: 20220831
  Receipt Date: 20220912
  Transmission Date: 20221026
  Serious: Yes (Death, Life-Threatening, Hospitalization, Other)
  Sender: FDA-Public Use
  Company Number: GB-MLMSERVICE-20220818-3742930-1

PATIENT

DRUGS (3)
  1. PREDNISOLONE [Suspect]
     Active Substance: PREDNISOLONE
     Indication: Myasthenia gravis
     Dosage: 15 MG, QD
  2. PREDNISOLONE [Suspect]
     Active Substance: PREDNISOLONE
     Dosage: UNK, DOSE INCREASED
  3. PYRIDOSTIGMINE [Concomitant]
     Active Substance: PYRIDOSTIGMINE
     Indication: Myasthenia gravis
     Dosage: UNK

REACTIONS (7)
  - Tuberculosis gastrointestinal [Fatal]
  - Small intestinal perforation [Fatal]
  - Peritonitis [Fatal]
  - Intestinal ischaemia [Fatal]
  - Multiple organ dysfunction syndrome [Fatal]
  - Disseminated tuberculosis [Fatal]
  - Large intestine perforation [Fatal]
